FAERS Safety Report 9887751 (Version 1)
Quarter: 2014Q1

REPORT INFORMATION
  Report Type: Spontaneous
  Country: US (occurrence: None)
  Receive Date: 20140206
  Receipt Date: 20140206
  Transmission Date: 20141002
  Serious: Yes (Hospitalization)
  Sender: FDA-Public Use
  Company Number: AUR-APL-2014-00668

PATIENT
  Age: 60 Year
  Sex: Male

DRUGS (3)
  1. METFORMIN [Suspect]
     Indication: DIABETES MELLITUS
     Dosage: 2000 MG (1000 MG, 2 IN 1 D), UNKNOWN
  2. LISINOPRIL (LISINOPRIL) [Concomitant]
  3. SIMVASTATIN (SIMVASTATIN) [Concomitant]

REACTIONS (11)
  - Lactic acidosis [None]
  - Haemodialysis [None]
  - Blood pressure decreased [None]
  - Heart rate increased [None]
  - Confusional state [None]
  - Metabolic acidosis [None]
  - Renal failure acute [None]
  - Toxicity to various agents [None]
  - Hypothermia [None]
  - Diarrhoea [None]
  - Vomiting [None]
